FAERS Safety Report 16154552 (Version 1)
Quarter: 2019Q2

REPORT INFORMATION
  Report Type: Spontaneous
  Country: DE (occurrence: DE)
  Receive Date: 20190403
  Receipt Date: 20190403
  Transmission Date: 20190711
  Serious: Yes (Life-Threatening, Hospitalization)
  Sender: FDA-Public Use
  Company Number: DE-ELI_LILLY_AND_COMPANY-DE201904001174

PATIENT
  Age: 41 Year
  Sex: Male

DRUGS (16)
  1. TAVOR (LORAZEPAM) [Concomitant]
     Active Substance: LORAZEPAM
     Dosage: 10 MG, DAILY
     Route: 048
     Dates: start: 20070807
  2. CIATYL-Z [ZUCLOPENTHIXOL HYDROCHLORIDE] [Suspect]
     Active Substance: ZUCLOPENTHIXOL
     Dosage: 100 MG, UNKNOWN
     Route: 048
     Dates: start: 20070814, end: 20070815
  3. CIATYL-Z [ZUCLOPENTHIXOL HYDROCHLORIDE] [Suspect]
     Active Substance: ZUCLOPENTHIXOL
     Indication: PRODUCT USED FOR UNKNOWN INDICATION
     Route: 048
     Dates: start: 20070816, end: 20070819
  4. NEUROCIL (LEVOMEPROMAZINE MALEATE) [Suspect]
     Active Substance: LEVOMEPROMAZINE MALEATE
     Indication: SCHIZOPHRENIA
     Dosage: AS USED: 260 MG  UNIT DOSE: 260 MG
     Route: 048
     Dates: start: 20070731, end: 20070817
  5. CLOZAPINE. [Concomitant]
     Active Substance: CLOZAPINE
     Indication: PRODUCT USED FOR UNKNOWN INDICATION
     Dosage: 200 MG, DAILY
     Route: 065
  6. TAVOR (LORAZEPAM) [Concomitant]
     Active Substance: LORAZEPAM
     Indication: PRODUCT USED FOR UNKNOWN INDICATION
     Route: 048
     Dates: start: 20070731, end: 20070804
  7. HALDOL [Suspect]
     Active Substance: HALOPERIDOL
     Dosage: 20 UNK
     Route: 048
  8. UNACID [AMPICILLIN SODIUM;SULBACTAM SODIUM] [Concomitant]
     Active Substance: AMPICILLIN SODIUM\SULBACTAM SODIUM
     Indication: PNEUMONIA
     Dosage: UNK UNK, UNKNOWN
     Route: 065
     Dates: start: 20070819, end: 20070823
  9. ZYPREXA [Suspect]
     Active Substance: OLANZAPINE
     Indication: PRODUCT USED FOR UNKNOWN INDICATION
     Dosage: UNK UNK, UNKNOWN
     Route: 065
  10. RISPERIDONE. [Concomitant]
     Active Substance: RISPERIDONE
     Indication: PRODUCT USED FOR UNKNOWN INDICATION
     Route: 065
     Dates: end: 20070802
  11. HALDOL [Suspect]
     Active Substance: HALOPERIDOL
     Indication: PRODUCT USED FOR UNKNOWN INDICATION
     Dosage: 30 MG, DAILY
     Route: 048
     Dates: start: 20070804, end: 20070819
  12. SERDOLECT [Suspect]
     Active Substance: SERTINDOLE
     Indication: PRODUCT USED FOR UNKNOWN INDICATION
     Dosage: UNK UNK, UNKNOWN
     Route: 065
  13. NEUROCIL (LEVOMEPROMAZINE MALEATE) [Suspect]
     Active Substance: LEVOMEPROMAZINE MALEATE
     Dosage: 200 MG, DAILY
     Route: 048
     Dates: start: 20070818, end: 20070819
  14. CLOZAPINE. [Concomitant]
     Active Substance: CLOZAPINE
     Dosage: 300 MG, DAILY
     Route: 048
  15. TAVOR (LORAZEPAM) [Concomitant]
     Active Substance: LORAZEPAM
     Dosage: 8 UNK
     Route: 048
     Dates: start: 20070805, end: 20070806
  16. CEFACLOR. [Concomitant]
     Active Substance: CEFACLOR
     Indication: PNEUMONIA
     Dosage: UNK UNK, UNKNOWN
     Route: 065
     Dates: start: 20070824, end: 20070912

REACTIONS (15)
  - Diet refusal [Recovered/Resolved]
  - Vomiting [Recovered/Resolved]
  - Salivary hypersecretion [Recovered/Resolved]
  - Chills [Recovered/Resolved]
  - Neuroleptic malignant syndrome [Recovered/Resolved]
  - Tachycardia [Unknown]
  - C-reactive protein increased [Unknown]
  - Amimia [Recovered/Resolved]
  - Parkinsonism [Recovered/Resolved]
  - Tremor [Recovered/Resolved]
  - Disturbance in attention [Recovered/Resolved]
  - Urinary tract infection [Recovered/Resolved]
  - Blood creatine phosphokinase increased [Recovered/Resolved]
  - Pneumonia [Recovered/Resolved]
  - Body temperature increased [Unknown]

NARRATIVE: CASE EVENT DATE: 20070819
